FAERS Safety Report 8376295-9 (Version None)
Quarter: 2012Q2

REPORT INFORMATION
  Report Type: 
  Country: None (occurrence: None)
  Receive Date: 20120522
  Receipt Date: 20120514
  Transmission Date: 20120825
  Serious: Yes (Hospitalization)
  Sender: FDA-Public Use
  Company Number: FR-SANOFI-AVENTIS-2012SA034113

PATIENT
  Age: 44 Year
  Sex: Female

DRUGS (6)
  1. FLUOROURACIL [Suspect]
     Indication: BREAST CANCER
     Dosage: 3 CYCLES.
     Route: 042
  2. EPIRUBICIN [Suspect]
     Indication: BREAST CANCER
     Dosage: 3 CYCLES.
     Route: 042
  3. CYCLOPHOSPHAMIDE [Suspect]
     Indication: BREAST CANCER
     Dosage: 3 CYCLES.
     Route: 042
  4. AMLODIPINE BESYLATE [Concomitant]
     Route: 065
  5. TAXOTERE [Suspect]
     Indication: BREAST CANCER
     Dosage: 3 CYCLES.
     Route: 042
  6. TRASTUZUMAB [Suspect]
     Indication: BREAST CANCER
     Dosage: 3 CYCLES.
     Route: 042
     Dates: start: 20090101, end: 20100706

REACTIONS (1)
  - ATRIAL THROMBOSIS [None]
